FAERS Safety Report 4339272-0 (Version None)
Quarter: 2004Q2

REPORT INFORMATION
  Report Type: 
  Country: None (occurrence: None)
  Receive Date: 20040412
  Receipt Date: 20040325
  Transmission Date: 20050107
  Serious: Yes (Congenital Anomaly)
  Sender: FDA-Public Use
  Company Number: 001191

PATIENT
  Sex: Female
  Weight: 3.5 kg

DRUGS (1)
  1. SEASONALE [Suspect]

REACTIONS (16)
  - ARNOLD-CHIARI MALFORMATION [None]
  - BICUSPID AORTIC VALVE [None]
  - BOWEL SOUNDS ABNORMAL [None]
  - BRAIN MALFORMATION [None]
  - CAESAREAN SECTION [None]
  - CONGENITAL HYDROCEPHALUS [None]
  - CONGENITAL MACROCEPHALY [None]
  - HYPERBILIRUBINAEMIA NEONATAL [None]
  - HYPOTONIA NEONATAL [None]
  - MATERNAL DRUGS AFFECTING FOETUS [None]
  - NEONATAL DISORDER [None]
  - NEUROGENIC BLADDER [None]
  - PATENT DUCTUS ARTERIOSUS [None]
  - SPINA BIFIDA [None]
  - TALIPES [None]
  - WHITE BLOOD CELL COUNT INCREASED [None]
